FAERS Safety Report 8967613 (Version 3)
Quarter: 2013Q4

REPORT INFORMATION
  Report Type: Report from Study
  Country: US (occurrence: US)
  Receive Date: 20121214
  Receipt Date: 20131008
  Transmission Date: 20140711
  Serious: Yes (Hospitalization, Other)
  Sender: FDA-Public Use
  Company Number: US-PFIZER INC-2012305190

PATIENT
  Age: 75 Year
  Sex: Male

DRUGS (3)
  1. CISPLATIN [Suspect]
     Indication: METASTATIC SQUAMOUS CELL CARCINOMA
     Dosage: UNK
     Dates: start: 20121129
  2. TEMSIROLIMUS [Suspect]
     Indication: METASTATIC SQUAMOUS CELL CARCINOMA
     Dosage: UNK
     Dates: start: 20121129
  3. TAXOL [Suspect]
     Indication: METASTATIC SQUAMOUS CELL CARCINOMA
     Dosage: UNK
     Dates: start: 20121129

REACTIONS (2)
  - Fatigue [Unknown]
  - Dyspnoea [Recovering/Resolving]
